FAERS Safety Report 8105502-2 (Version None)
Quarter: 2012Q1

REPORT INFORMATION
  Report Type: 
  Country: None (occurrence: None)
  Receive Date: 20120201
  Receipt Date: 20120130
  Transmission Date: 20120608
  Serious: Yes (Hospitalization, Other)
  Sender: FDA-Public Use
  Company Number: JP-PFIZER INC-2012013524

PATIENT
  Age: 69 Year
  Sex: Female

DRUGS (4)
  1. OLOPATADINE HCL [Concomitant]
     Dosage: 10 MG, 1X/DAY
     Route: 048
  2. LYRICA [Suspect]
     Indication: FACIAL PAIN
     Dosage: 50 MG, 2X/DAY
     Route: 048
     Dates: start: 20120111, end: 20120114
  3. MUCODYNE [Concomitant]
     Dosage: 1000 MG, 1X/DAY
     Route: 048
  4. CLEANAL [Concomitant]
     Dosage: 400 MG, 1X/DAY
     Route: 048

REACTIONS (3)
  - LOSS OF CONSCIOUSNESS [None]
  - NAUSEA [None]
  - VOMITING [None]
